FAERS Safety Report 5989624-8 (Version None)
Quarter: 2008Q4

REPORT INFORMATION
  Report Type: 
  Country: None (occurrence: None)
  Receive Date: 20081205
  Receipt Date: 20081124
  Transmission Date: 20090506
  Serious: Yes (Hospitalization)
  Sender: FDA-Public Use
  Company Number: 232236K08USA

PATIENT
  Age: 56 Year
  Sex: Male
  Weight: 125 kg

DRUGS (7)
  1. REBIF [Suspect]
     Indication: OFF LABEL USE
     Dosage: 44 MCG, 3 IN 1 WEEKS, SUBCUTANEOUS
     Route: 058
     Dates: start: 20060424, end: 20081111
  2. DIOVAN [Concomitant]
  3. LOVASTATIN [Concomitant]
  4. FLOMAX(MORNIFLUMATE) [Concomitant]
  5. KLONOPIN [Concomitant]
  6. ZANAFLEX [Concomitant]
  7. ZOLOFT [Concomitant]

REACTIONS (3)
  - CORONARY ARTERY OCCLUSION [None]
  - MYOCARDIAL INFARCTION [None]
  - OFF LABEL USE [None]
